FAERS Safety Report 5563664-5 (Version None)
Quarter: 2007Q4

REPORT INFORMATION
  Report Type: 
  Country: None (occurrence: None)
  Receive Date: 20071217
  Receipt Date: 20070730
  Transmission Date: 20080405
  Serious: No
  Sender: FDA-Public Use
  Company Number: US-ASTRAZENECA-2007UW18275

PATIENT
  Age: 67 Year
  Sex: Male
  Weight: 79.4 kg

DRUGS (6)
  1. CRESTOR [Suspect]
     Indication: BLOOD CHOLESTEROL INCREASED
     Route: 048
     Dates: start: 20070713
  2. WELLBUTRIN [Concomitant]
  3. ACCOLADE [Concomitant]
  4. FLONASE [Concomitant]
  5. SYNTHROID [Concomitant]
  6. PLAVIX [Concomitant]

REACTIONS (1)
  - FATIGUE [None]
